FAERS Safety Report 15672600 (Version 1)
Quarter: 2018Q4

REPORT INFORMATION
  Report Type: Spontaneous
  Country: TH (occurrence: TH)
  Receive Date: 20181129
  Receipt Date: 20181129
  Transmission Date: 20190205
  Serious: Yes (Other)
  Sender: FDA-Public Use
  Company Number: TH-MIST-TIR-2018-1212

PATIENT
  Age: 35 Year
  Sex: Female

DRUGS (1)
  1. LEVOTHYROXINE. [Suspect]
     Active Substance: LEVOTHYROXINE
     Indication: POST PROCEDURAL HYPOTHYROIDISM
     Dosage: 100MCG DAILY

REACTIONS (4)
  - Hyperthyroidism [Recovered/Resolved]
  - Fatigue [Unknown]
  - Syncope [Unknown]
  - Overdose [Unknown]
